FAERS Safety Report 11202796 (Version 1)
Quarter: 2015Q2

REPORT INFORMATION
  Report Type: Spontaneous
  Country: US (occurrence: None)
  Receive Date: 20150617
  Receipt Date: 20150617
  Transmission Date: 20150821
  Serious: Yes (Disabling, Other)
  Sender: FDA-Public Use
  Company Number: None

PATIENT
  Age: 56 Year
  Sex: Male
  Weight: 92.99 kg

DRUGS (4)
  1. OMEPRAZOLE. [Concomitant]
     Active Substance: OMEPRAZOLE
  2. LEVOTHYROXINE [Concomitant]
     Active Substance: LEVOTHYROXINE
  3. SIMVASTATIN. [Suspect]
     Active Substance: SIMVASTATIN
     Indication: BLOOD CHOLESTEROL INCREASED
     Dosage: 1PILL DAILEY ONCE DAILY TAKEN BY MOUTH
     Route: 048
     Dates: start: 20150301, end: 20150602
  4. ALEVE [Concomitant]
     Active Substance: NAPROXEN SODIUM

REACTIONS (10)
  - Muscular weakness [None]
  - Arthralgia [None]
  - Impaired driving ability [None]
  - Musculoskeletal pain [None]
  - Pain [None]
  - Myalgia [None]
  - Sleep disorder [None]
  - Movement disorder [None]
  - Back pain [None]
  - Pain in extremity [None]
